FAERS Safety Report 21181229 (Version 1)
Quarter: 2022Q3

REPORT INFORMATION
  Report Type: Report from Study
  Country: US (occurrence: US)
  Receive Date: 20220806
  Receipt Date: 20220806
  Transmission Date: 20221027
  Serious: Yes (Hospitalization)
  Sender: FDA-Public Use
  Company Number: US-Accord-271957

PATIENT
  Sex: Male

DRUGS (1)
  1. CLOZAPINE [Suspect]
     Active Substance: CLOZAPINE
     Indication: Product used for unknown indication
     Route: 048

REACTIONS (8)
  - Imprisonment [Unknown]
  - Rhabdomyolysis [Unknown]
  - Neuroleptic malignant syndrome [Unknown]
  - Hepatic enzyme abnormal [Unknown]
  - Leukocytosis [Unknown]
  - Red blood cell count decreased [Unknown]
  - Pneumonia aspiration [Unknown]
  - Loss of consciousness [Unknown]
